FAERS Safety Report 4749747-8 (Version None)
Quarter: 2005Q3

REPORT INFORMATION
  Report Type: 
  Country: None (occurrence: None)
  Receive Date: 20050822
  Receipt Date: 20050808
  Transmission Date: 20060218
  Serious: Yes (Life-Threatening, Hospitalization, Other)
  Sender: FDA-Public Use
  Company Number: 200516143US

PATIENT
  Sex: Female
  Weight: 129 kg

DRUGS (9)
  1. LOVENOX [Suspect]
     Indication: PROPHYLAXIS
     Route: 058
     Dates: start: 20030101
  2. LOVENOX [Suspect]
     Indication: PULMONARY EMBOLISM
     Route: 058
     Dates: start: 20030101
  3. LOVENOX [Suspect]
     Indication: THROMBOSIS PROPHYLAXIS
     Route: 058
     Dates: start: 20030101
  4. PLAVIX [Suspect]
     Indication: THROMBOSIS
     Dosage: DOSE: NOT PROVIDED
     Dates: end: 20040101
  5. ASPIRIN [Concomitant]
     Dosage: DOSE: NOT PROVIDED
     Dates: end: 20040101
  6. NEXIUM [Concomitant]
     Indication: GASTROOESOPHAGEAL REFLUX DISEASE
     Dosage: DOSE: NOT PROVIDED
  7. VERAPAMIL HCL [Concomitant]
     Indication: MIGRAINE
     Dosage: DOSE: NOT PROVIDED
  8. TOPAMAX [Concomitant]
     Indication: MIGRAINE
     Dosage: DOSE: NOT PROVIDED
  9. PROZAC [Concomitant]
     Indication: MIGRAINE
     Dosage: DOSE: NOT PROVIDED

REACTIONS (15)
  - ABDOMINAL PAIN UPPER [None]
  - CARDIO-RESPIRATORY ARREST [None]
  - CHEST PAIN [None]
  - COMA [None]
  - DEVICE FAILURE [None]
  - HYPERHIDROSIS [None]
  - HYPOVOLAEMIC SHOCK [None]
  - LOWER LIMB FRACTURE [None]
  - MUSCLE HAEMORRHAGE [None]
  - MUSCLE INJURY [None]
  - NERVE INJURY [None]
  - OEDEMA PERIPHERAL [None]
  - RENAL FAILURE ACUTE [None]
  - RETROPERITONEAL HAEMATOMA [None]
  - URINARY BLADDER RUPTURE [None]
